FAERS Safety Report 8989104 (Version 1)
Quarter: 2012Q4

REPORT INFORMATION
  Report Type: 
  Country: IT (occurrence: IT)
  Receive Date: 20121228
  Receipt Date: 20121228
  Transmission Date: 20130627
  Serious: Yes (Other)
  Sender: FDA-Public Use
  Company Number: IT-ELI_LILLY_AND_COMPANY-IT201212007214

PATIENT
  Age: 8 Year
  Sex: Male

DRUGS (2)
  1. ATOMOXETINE HYDROCHLORIDE [Suspect]
     Indication: ATTENTION DEFICIT/HYPERACTIVITY DISORDER
     Dosage: 35 mg, qd
  2. ATOMOXETINE HYDROCHLORIDE [Suspect]
     Dosage: 18 mg, qd

REACTIONS (2)
  - Weight increased [Not Recovered/Not Resolved]
  - Hyperhidrosis [Unknown]
